FAERS Safety Report 13728868 (Version 1)
Quarter: 2017Q3

REPORT INFORMATION
  Report Type: Spontaneous
  Country: US (occurrence: US)
  Receive Date: 20170707
  Receipt Date: 20170707
  Transmission Date: 20171127
  Serious: No
  Sender: FDA-Public Use
  Company Number: US-JNJFOC-20170331594

PATIENT
  Age: 27 Year
  Sex: Male
  Weight: 84.82 kg

DRUGS (3)
  1. PALIPERIDONE ER [Suspect]
     Active Substance: PALIPERIDONE
     Indication: BIPOLAR DISORDER
     Route: 048
     Dates: start: 20170211, end: 20170225
  2. PALIPERIDONE ER [Suspect]
     Active Substance: PALIPERIDONE
     Indication: BIPOLAR DISORDER
     Route: 048
     Dates: start: 20170225, end: 20170324
  3. LITHIUM. [Concomitant]
     Active Substance: LITHIUM
     Indication: BIPOLAR DISORDER
     Route: 065

REACTIONS (1)
  - Irregular sleep phase [Recovered/Resolved]

NARRATIVE: CASE EVENT DATE: 201702
